FAERS Safety Report 8998775 (Version 1)
Quarter: 2013Q1

REPORT INFORMATION
  Report Type: Spontaneous
  Country: US (occurrence: US)
  Receive Date: 20130103
  Receipt Date: 20130103
  Transmission Date: 20140127
  Serious: Yes (Other)
  Sender: FDA-Public Use
  Company Number: US-PFIZER INC-2013001349

PATIENT
  Age: 39 Year
  Sex: Male
  Weight: 95.24 kg

DRUGS (6)
  1. CHANTIX [Suspect]
     Indication: SMOKING CESSATION THERAPY
     Dosage: 0.5 MG, UNK
     Dates: start: 201203
  2. CHANTIX [Suspect]
     Dosage: 1 MG, 2X/DAY
     Dates: end: 201207
  3. WELLBUTRIN [Suspect]
     Indication: MOOD ALTERED
     Dosage: 15 MG, DAILY
     Dates: start: 201207, end: 201210
  4. WELLBUTRIN [Suspect]
     Indication: DEPRESSION
  5. CELEXA [Suspect]
     Indication: MOOD ALTERED
     Dosage: 10 MG, DAILY
     Dates: start: 20121010, end: 201212
  6. CELEXA [Suspect]
     Indication: DEPRESSION

REACTIONS (3)
  - Depression [Not Recovered/Not Resolved]
  - Therapeutic response unexpected [Unknown]
  - Drug hypersensitivity [Unknown]
